FAERS Safety Report 9548646 (Version 1)
Quarter: 2013Q3

REPORT INFORMATION
  Report Type: Spontaneous
  Country: US (occurrence: None)
  Receive Date: 20130919
  Receipt Date: 20130919
  Transmission Date: 20140515
  Serious: Yes (Other)
  Sender: FDA-Public Use
  Company Number: 2013AP008055

PATIENT
  Age: 68 Year
  Sex: Male

DRUGS (6)
  1. GABAPENTIN [Suspect]
     Indication: POLYNEUROPATHY
     Dates: start: 20130905
  2. CYTRA-2 [Concomitant]
  3. OMEPRAZOLE [Concomitant]
  4. HYDROCHLOROTHIAZIDE [Concomitant]
  5. TAMSULOSIN [Concomitant]
  6. GABAPENTIN [Concomitant]

REACTIONS (5)
  - Formication [None]
  - Pain in extremity [None]
  - Insomnia [None]
  - Depression suicidal [None]
  - Adverse drug reaction [None]
